FAERS Safety Report 20116045 (Version 2)
Quarter: 2022Q1

REPORT INFORMATION
  Report Type: Spontaneous
  Country: US (occurrence: US)
  Receive Date: 20211126
  Receipt Date: 20220208
  Transmission Date: 20220423
  Serious: No
  Sender: FDA-Public Use
  Company Number: US-LUNDBECK-DKLU3041211

PATIENT
  Age: 39 Year
  Sex: Female

DRUGS (4)
  1. VYEPTI [Suspect]
     Active Substance: EPTINEZUMAB-JJMR
     Indication: Migraine
     Dosage: 100MG ONCE
     Route: 041
     Dates: start: 20211110
  2. VYEPTI [Suspect]
     Active Substance: EPTINEZUMAB-JJMR
     Dosage: 100MG ONCE
     Route: 041
     Dates: start: 20211110
  3. FIORICET [Concomitant]
     Active Substance: ACETAMINOPHEN\BUTALBITAL\CAFFEINE
     Indication: Headache
     Route: 065
  4. TORADOL [Concomitant]
     Active Substance: KETOROLAC TROMETHAMINE
     Indication: Headache
     Route: 065

REACTIONS (9)
  - Throat irritation [Unknown]
  - Headache [Unknown]
  - Rhinorrhoea [Unknown]
  - Myalgia [Unknown]
  - Gait inability [Unknown]
  - Dysphonia [Unknown]
  - Dizziness [Unknown]
  - Asthenia [Unknown]
  - Blood pressure increased [Unknown]

NARRATIVE: CASE EVENT DATE: 20211110
